FAERS Safety Report 7625912-7 (Version None)
Quarter: 2011Q3

REPORT INFORMATION
  Report Type: 
  Country: None (occurrence: None)
  Receive Date: 20110721
  Receipt Date: 20110721
  Transmission Date: 20111222
  Serious: Yes (Other)
  Sender: FDA-Public Use
  Company Number: None

PATIENT
  Age: 35 Year
  Sex: Female
  Weight: 62.595 kg

DRUGS (1)
  1. NALTREXONE HYDROCHLORIDE [Suspect]
     Indication: REVERSAL OF OPIATE ACTIVITY
     Dosage: 2 MONTH SUPPLY IMPLANTED IN ME
     Route: 059
     Dates: start: 20110712, end: 20110912

REACTIONS (18)
  - ABDOMINAL DISCOMFORT [None]
  - FATIGUE [None]
  - DYSPNOEA [None]
  - PRESYNCOPE [None]
  - INSOMNIA [None]
  - DIARRHOEA [None]
  - VOMITING [None]
  - ASTHENIA [None]
  - ABDOMINAL PAIN [None]
  - DIZZINESS [None]
  - DECREASED APPETITE [None]
  - WEIGHT DECREASED [None]
  - RETCHING [None]
  - TEMPERATURE INTOLERANCE [None]
  - PILOERECTION [None]
  - DEPRESSION [None]
  - TREMOR [None]
  - ANXIETY [None]
